FAERS Safety Report 4382264-6 (Version None)
Quarter: 2004Q2

REPORT INFORMATION
  Report Type: 
  Country: None (occurrence: None)
  Receive Date: 20040615
  Receipt Date: 20040603
  Transmission Date: 20050107
  Serious: Yes (Death)
  Sender: FDA-Public Use
  Company Number: 163-20785-04050454

PATIENT
  Age: 91 Year
  Sex: Male

DRUGS (1)
  1. THALOMID [Suspect]
     Indication: PLASMACYTOMA
     Dosage: 50 MG, QHS, ORAL
     Route: 048
     Dates: start: 20040428, end: 20040502

REACTIONS (3)
  - MALIGNANT NEOPLASM PROGRESSION [None]
  - MULTIPLE MYELOMA [None]
  - RENAL FAILURE [None]
